FAERS Safety Report 5001580-8 (Version None)
Quarter: 2006Q2

REPORT INFORMATION
  Report Type: 
  Country: None (occurrence: None)
  Receive Date: 20060510
  Receipt Date: 20060427
  Transmission Date: 20061013
  Serious: No
  Sender: FDA-Public Use
  Company Number: 2006042815

PATIENT
  Age: 71 Year
  Sex: Female
  Weight: 68.0396 kg

DRUGS (12)
  1. AROMASIN [Suspect]
     Indication: BREAST CANCER FEMALE
     Dosage: 25 MG (25 MG, 1 IN 1 D), ORAL
     Route: 048
     Dates: start: 20050601, end: 20060401
  2. ACIPHEX [Concomitant]
  3. ALLEGRA [Concomitant]
  4. AMBIEN [Concomitant]
  5. AVANDIA [Concomitant]
  6. BENTYL [Concomitant]
  7. CARAFATE [Concomitant]
  8. DARVOCET [Concomitant]
  9. ELAVIL (AMTRIPTYLINE HYDROCHLORIDE) [Concomitant]
  10. FIORICET [Concomitant]
  11. SALAGEN [Concomitant]
  12. ACTONEL [Concomitant]

REACTIONS (3)
  - DISEASE RECURRENCE [None]
  - HYPOTRICHOSIS [None]
  - SPINAL COLUMN STENOSIS [None]
